FAERS Safety Report 6233302-7 (Version None)
Quarter: 2009Q2

REPORT INFORMATION
  Report Type: 
  Country: None (occurrence: None)
  Receive Date: 20090617
  Receipt Date: 20090610
  Transmission Date: 20091009
  Serious: No
  Sender: FDA-Public Use
  Company Number: CA-CELGENEUS-028-21880-09041544

PATIENT
  Sex: Female

DRUGS (3)
  1. REVLIMID [Suspect]
     Route: 048
     Dates: start: 20081202, end: 20090408
  2. VITAMIN B-12 [Concomitant]
     Indication: DRUG USE FOR UNKNOWN INDICATION
     Route: 065
  3. MORPHINE [Concomitant]
     Indication: DRUG USE FOR UNKNOWN INDICATION
     Route: 065

REACTIONS (2)
  - HAEMORRHOIDAL HAEMORRHAGE [None]
  - THROMBOCYTOPENIA [None]
